FAERS Safety Report 16057397 (Version 1)
Quarter: 2019Q1

REPORT INFORMATION
  Report Type: Spontaneous
  Country: US (occurrence: US)
  Receive Date: 20190311
  Receipt Date: 20190311
  Transmission Date: 20190418
  Serious: Yes (Other)
  Sender: FDA-Public Use
  Company Number: US-SA-2019SA060754

PATIENT
  Age: 40 Year
  Sex: Female

DRUGS (2)
  1. SOLIQUA 100/33 [Suspect]
     Active Substance: INSULIN GLARGINE\LIXISENATIDE
     Dosage: UNKNOWN
     Route: 065
     Dates: start: 20190124, end: 20190221
  2. SOLOSTAR [Suspect]
     Active Substance: DEVICE
     Dosage: UNKNOWN
     Route: 065
     Dates: start: 20190124, end: 20190221

REACTIONS (4)
  - Mouth swelling [Unknown]
  - Eye swelling [Unknown]
  - Angioedema [Unknown]
  - Anaphylactic shock [Unknown]
